FAERS Safety Report 12787116 (Version 1)
Quarter: 2016Q3

REPORT INFORMATION
  Report Type: Spontaneous
  Country: DE (occurrence: DE)
  Receive Date: 20160928
  Receipt Date: 20160928
  Transmission Date: 20161109
  Serious: Yes (Other)
  Sender: FDA-Public Use
  Company Number: DE-OTSUKA-2016_022858

PATIENT
  Age: 13 Year
  Sex: Male

DRUGS (5)
  1. RITUXIMAB [Concomitant]
     Active Substance: RITUXIMAB
     Dosage: 2 ? 375 MG/M2
     Route: 065
  2. CYCLOPHOSPHAMIDE. [Suspect]
     Active Substance: CYCLOPHOSPHAMIDE
     Indication: STEM CELL TRANSPLANT
     Dosage: 40 MG/KG, UNK
     Route: 065
  3. BUSULFAN. [Suspect]
     Active Substance: BUSULFAN
     Indication: STEM CELL TRANSPLANT
     Dosage: 1.6 MG/KG, UNK
     Route: 042
  4. RITUXIMAB [Concomitant]
     Active Substance: RITUXIMAB
     Indication: EPSTEIN-BARR VIRUS ASSOCIATED LYMPHOPROLIFERATIVE DISORDER
     Dosage: 6 ? 375 MG/M2
     Route: 065
  5. FLUDARABINE [Suspect]
     Active Substance: FLUDARABINE PHOSPHATE
     Indication: STEM CELL TRANSPLANT
     Dosage: 180 MG/M2, UNK
     Route: 065

REACTIONS (5)
  - Cystitis haemorrhagic [Unknown]
  - Venoocclusive disease [Unknown]
  - Mucosal toxicity [Unknown]
  - Gastrointestinal haemorrhage [Unknown]
  - Pleural effusion [Unknown]
